FAERS Safety Report 17056213 (Version 3)
Quarter: 2020Q3

REPORT INFORMATION
  Report Type: Report from Study
  Country: CA (occurrence: CA)
  Receive Date: 20191121
  Receipt Date: 20200828
  Transmission Date: 20201102
  Serious: Yes (Hospitalization, Other)
  Sender: FDA-Public Use
  Company Number: CA-BRISTOL-MYERS SQUIBB COMPANY-BMS-2019-108300

PATIENT
  Age: 85 Year
  Sex: Female

DRUGS (1)
  1. ABATACEPT [Suspect]
     Active Substance: ABATACEPT
     Indication: RHEUMATOID ARTHRITIS
     Dosage: 750 MILLIGRAM, QMO
     Route: 042
     Dates: start: 20130802

REACTIONS (4)
  - Back pain [Unknown]
  - Contusion [Unknown]
  - Atrial fibrillation [Unknown]
  - Fall [Unknown]

NARRATIVE: CASE EVENT DATE: 20191105
